FAERS Safety Report 7520978-7 (Version None)
Quarter: 2011Q2

REPORT INFORMATION
  Report Type: 
  Country: None (occurrence: None)
  Receive Date: 20110603
  Receipt Date: 20100920
  Transmission Date: 20111010
  Serious: Yes (Hospitalization)
  Sender: FDA-Public Use
  Company Number: US-BAYER-201012830NA

PATIENT
  Age: 35 Year
  Sex: Female
  Weight: 68 kg

DRUGS (18)
  1. PHENERGAN HCL [Concomitant]
     Indication: MUSCLE RELAXANT THERAPY
     Dosage: STOPPED BETWEEN MAY-AUG-2008
     Dates: start: 20080201
  2. LIDODERM [Concomitant]
     Indication: BACK PAIN
     Dosage: STOPPED BETWEEN MAY-AUG-2008
     Route: 062
     Dates: end: 20080101
  3. YASMIN [Suspect]
     Indication: ORAL CONTRACEPTION
     Route: 048
     Dates: start: 20071101, end: 20080125
  4. NAPROSYN [Concomitant]
     Indication: NECK PAIN
  5. YASMIN [Suspect]
     Indication: ACNE
  6. SKELAXIN [Concomitant]
     Indication: NECK PAIN
     Dosage: B.I.D. TO T.I.D, STOPPED BETWEEN MAY-AUG-2008
     Route: 048
     Dates: start: 20080211, end: 20080101
  7. SPIRONOLACTONE [Concomitant]
     Indication: PALLOR
     Dosage: STOPPED BETWEEN MAY-AUG-2008
     Route: 048
     Dates: end: 20080101
  8. ACCUTANE [Concomitant]
  9. PREDNISONE [Concomitant]
     Indication: NECK PAIN
  10. SKELAXIN [Concomitant]
     Indication: MUSCLE STRAIN
     Dosage: UP TO TID
     Route: 048
     Dates: start: 20080104, end: 20080101
  11. SKELAXIN [Concomitant]
     Indication: HEADACHE
  12. IBUPROFEN [Concomitant]
     Indication: NECK PAIN
     Dates: start: 20071201, end: 20071201
  13. PREDNISONE [Concomitant]
     Indication: MUSCULOSKELETAL PAIN
     Route: 048
     Dates: start: 20080116, end: 20080120
  14. PREDNISONE [Concomitant]
     Indication: RADICULITIS
  15. NAPROSYN [Concomitant]
     Indication: MUSCLE STRAIN
  16. LORTAB [Concomitant]
     Indication: PAIN
     Dates: start: 20080201, end: 20080401
  17. NAPROSYN [Concomitant]
     Indication: MUSCULOSKELETAL PAIN
     Dosage: 1000 MG (DAILY DOSE), BID, ORAL
     Route: 048
     Dates: start: 20080104, end: 20080128
  18. VALIUM [Concomitant]
     Dosage: ONE TO TWO TABLETS DAILY , STOPPED BETWEEN MAY-AUG-2008
     Route: 048
     Dates: start: 20080101, end: 20080101

REACTIONS (4)
  - PULMONARY EMBOLISM [None]
  - CARDIAC DISCOMFORT [None]
  - BACK PAIN [None]
  - PULMONARY THROMBOSIS [None]
